FAERS Safety Report 12467374 (Version 4)
Quarter: 2016Q3

REPORT INFORMATION
  Report Type: Spontaneous
  Country: US (occurrence: US)
  Receive Date: 20160615
  Receipt Date: 20160901
  Transmission Date: 20161109
  Serious: Yes (Other)
  Sender: FDA-Public Use
  Company Number: US-PFIZER INC-2016295901

PATIENT
  Age: 81 Year
  Sex: Female
  Weight: 51 kg

DRUGS (10)
  1. IMODIUM [Concomitant]
     Active Substance: LOPERAMIDE HYDROCHLORIDE
     Dosage: UNK
  2. NORCO [Concomitant]
     Active Substance: ACETAMINOPHEN\HYDROCODONE BITARTRATE
     Dosage: UNK (HYDROCODONE BITARTRATE 5 MG; PARACETAMOL: 352 MG)
     Dates: start: 20160722
  3. LOMOTIL [Concomitant]
     Active Substance: ATROPINE SULFATE\DIPHENOXYLATE HYDROCHLORIDE
     Dosage: UNK, (2.5 MG ATROPINE AND 0.025 MG DIPHENOXYLATE HYDROCHLORIDE)
  4. SUTENT [Suspect]
     Active Substance: SUNITINIB MALATE
     Indication: RENAL CANCER METASTATIC
     Dosage: 37.5 MG, CYCLIC (37.5 MG - 28 DAYS ON/14 DAYS OFF)
     Route: 048
     Dates: start: 20160524, end: 20160610
  5. FERROUS SULFATE. [Concomitant]
     Active Substance: FERROUS SULFATE
     Dosage: 325 MG, UNK (65 MG IRON)
     Dates: start: 20160505
  6. ATORVASTATIN [Concomitant]
     Active Substance: ATORVASTATIN
     Dosage: 40 MG, UNK
     Dates: start: 20160422
  7. TYLENOL [Concomitant]
     Active Substance: ACETAMINOPHEN
     Indication: PAIN
     Dosage: 325 MG, UNK
  8. LIPITOR [Concomitant]
     Active Substance: ATORVASTATIN CALCIUM
     Dosage: UNK
  9. COMPAZINE [Concomitant]
     Active Substance: PROCHLORPERAZINE MALEATE
     Dosage: 10 MG, UNK
  10. IRON [Concomitant]
     Active Substance: IRON
     Dosage: 2.5 MG, UNK
     Dates: start: 20160505

REACTIONS (19)
  - Malaise [Unknown]
  - Urinary incontinence [Unknown]
  - Haematochezia [Unknown]
  - Asthenia [Unknown]
  - Back pain [Unknown]
  - Flank pain [Unknown]
  - Haematuria [Unknown]
  - Dysgeusia [Unknown]
  - Weight decreased [Recovering/Resolving]
  - Diarrhoea [Not Recovered/Not Resolved]
  - Abdominal discomfort [Unknown]
  - Muscle spasms [Unknown]
  - Thrombocytopenia [Recovering/Resolving]
  - Pain in extremity [Unknown]
  - Blood urine present [Unknown]
  - Anal incontinence [Unknown]
  - Night sweats [Unknown]
  - Insomnia [Unknown]
  - Clostridium difficile colitis [Not Recovered/Not Resolved]

NARRATIVE: CASE EVENT DATE: 20160610
